FAERS Safety Report 14710794 (Version 2)
Quarter: 2018Q2

REPORT INFORMATION
  Report Type: Spontaneous
  Country: JP (occurrence: JP)
  Receive Date: 20180403
  Receipt Date: 20180427
  Transmission Date: 20180711
  Serious: Yes (Hospitalization, Other)
  Sender: FDA-Public Use
  Company Number: JP-PFIZER INC-2018132968

PATIENT
  Age: 50 Year
  Sex: Female
  Weight: 61.3 kg

DRUGS (7)
  1. FEMARA [Concomitant]
     Active Substance: LETROZOLE
     Indication: BREAST CANCER
     Dosage: 2.5 MG, 1X/DAY
     Route: 048
     Dates: start: 20180309, end: 20180323
  2. LOXOPROFEN [Concomitant]
     Active Substance: LOXOPROFEN
     Indication: CANCER PAIN
     Dosage: 60 MG, 2X/DAY
     Route: 048
     Dates: start: 20120608
  3. ALLEGRA [Concomitant]
     Active Substance: FEXOFENADINE HYDROCHLORIDE
     Indication: PRURITUS
     Dosage: 60 MG, 2X/DAY
     Route: 048
     Dates: start: 20171226
  4. MECOBALAMIN [Concomitant]
     Active Substance: METHYLCOBALAMIN
     Indication: NEUROPATHY PERIPHERAL
     Dosage: 500 UG, 3X/DAY
     Route: 048
     Dates: start: 20170428
  5. FUROSEMIDE. [Concomitant]
     Active Substance: FUROSEMIDE
     Indication: MALIGNANT ASCITES
     Dosage: 10 MG, 2X/DAY
     Route: 048
     Dates: start: 20180112
  6. IBRANCE [Suspect]
     Active Substance: PALBOCICLIB
     Indication: BREAST CANCER
     Dosage: 125 MG, 1X/DAY
     Route: 048
     Dates: start: 20180309, end: 20180323
  7. REBAMIPIDE [Concomitant]
     Active Substance: REBAMIPIDE
     Indication: GASTRITIS PROPHYLAXIS
     Dosage: 100 MG, 2X/DAY
     Route: 048
     Dates: start: 20161025

REACTIONS (6)
  - Epistaxis [Unknown]
  - C-reactive protein increased [Not Recovered/Not Resolved]
  - Diarrhoea [Unknown]
  - Pancytopenia [Recovering/Resolving]
  - Blood bilirubin increased [Not Recovered/Not Resolved]
  - Melaena [Unknown]

NARRATIVE: CASE EVENT DATE: 20180323
